FAERS Safety Report 9617177 (Version 1)
Quarter: 2013Q4

REPORT INFORMATION
  Report Type: Spontaneous
  Country: US (occurrence: None)
  Receive Date: 20131011
  Receipt Date: 20131011
  Transmission Date: 20140711
  Serious: Yes (Disabling)
  Sender: FDA-Public Use
  Company Number: None

PATIENT
  Age: 15 Year
  Sex: Male
  Weight: 44.91 kg

DRUGS (1)
  1. METHYLPHENIDATE [Suspect]
     Indication: ATTENTION DEFICIT/HYPERACTIVITY DISORDER
     Dosage: 2 PER DAY, ONCE DAILY, TAKEN BY MOUTH
     Route: 048
     Dates: start: 20130514, end: 20131010

REACTIONS (6)
  - Abdominal pain upper [None]
  - Headache [None]
  - Impulsive behaviour [None]
  - Depression [None]
  - Sudden onset of sleep [None]
  - Product substitution issue [None]
